FAERS Safety Report 9259424 (Version 1)
Quarter: 2013Q2

REPORT INFORMATION
  Report Type: Spontaneous
  Country: FR (occurrence: FR)
  Receive Date: 20130428
  Receipt Date: 20130428
  Transmission Date: 20140414
  Serious: Yes (Other)
  Sender: FDA-Public Use
  Company Number: FR-TEVA-400826ISR

PATIENT
  Age: 84 Year
  Sex: Female

DRUGS (3)
  1. AZILECT [Suspect]
     Indication: EXTRAPYRAMIDAL DISORDER
     Dates: start: 20110407
  2. LAROXYL [Concomitant]
  3. LYSANXIA [Concomitant]

REACTIONS (2)
  - Neurogenic bladder [Recovered/Resolved]
  - Off label use [Unknown]
